FAERS Safety Report 6335281-0 (Version None)
Quarter: 2009Q3

REPORT INFORMATION
  Report Type: 
  Country: None (occurrence: None)
  Receive Date: 20090831
  Receipt Date: 20090820
  Transmission Date: 20100115
  Serious: Yes (Hospitalization)
  Sender: FDA-Public Use
  Company Number: FR-ASTRAZENECA-2009SE09036

PATIENT
  Age: 26932 Day
  Sex: Female

DRUGS (8)
  1. MOPRAL [Suspect]
     Indication: PROPHYLAXIS AGAINST GASTROINTESTINAL ULCER
     Route: 048
     Dates: start: 20090420, end: 20090504
  2. CELEBREX [Suspect]
     Indication: PAIN
     Route: 048
     Dates: start: 20090420, end: 20090504
  3. TETRAZEPAM [Suspect]
     Indication: PAIN
     Route: 048
     Dates: start: 20090420, end: 20090504
  4. IXPRIM [Suspect]
     Indication: PAIN
     Dosage: 37.5/325 MG, 6 DF DAILY
     Route: 048
     Dates: start: 20090420, end: 20090504
  5. OROCAL VITAMINE D3 [Concomitant]
     Dosage: 2 TABLETS
     Route: 048
  6. SEREVENT [Concomitant]
  7. BECOTIDE [Concomitant]
  8. BONIVA [Concomitant]

REACTIONS (1)
  - TOXIC SKIN ERUPTION [None]
